FAERS Safety Report 16296826 (Version 2)
Quarter: 2019Q2

REPORT INFORMATION
  Report Type: Spontaneous
  Country: US (occurrence: US)
  Receive Date: 20190510
  Receipt Date: 20190531
  Transmission Date: 20190711
  Serious: No
  Sender: FDA-Public Use
  Company Number: US-JNJFOC-20190437318

PATIENT
  Sex: Male

DRUGS (2)
  1. MENS ROGAINE EXTRA STRENGTH UNSCENTED [Suspect]
     Active Substance: MINOXIDIL
     Route: 061
  2. MENS ROGAINE EXTRA STRENGTH UNSCENTED [Suspect]
     Active Substance: MINOXIDIL
     Indication: ALOPECIA
     Dosage: 1/2 CAP TWICE DAILY
     Route: 061

REACTIONS (5)
  - Skin irritation [Recovering/Resolving]
  - Application site rash [Recovering/Resolving]
  - Pruritus [Recovering/Resolving]
  - Dandruff [Recovering/Resolving]
  - Skin exfoliation [Recovering/Resolving]
